FAERS Safety Report 7496549-8 (Version None)
Quarter: 2011Q2

REPORT INFORMATION
  Report Type: 
  Country: None (occurrence: None)
  Receive Date: 20110520
  Receipt Date: 20110520
  Transmission Date: 20111010
  Serious: Yes (Hospitalization)
  Sender: FDA-Public Use
  Company Number: None

PATIENT
  Age: 68 Year
  Sex: Male
  Weight: 80.6 kg

DRUGS (13)
  1. AMBIEN [Concomitant]
  2. TRICOR [Concomitant]
  3. RAD001 EVEROLIMUS [Suspect]
     Indication: COLORECTAL CANCER
     Dosage: 10.0 MG PO QD
     Route: 048
     Dates: start: 20110309, end: 20110515
  4. IRBSARTAN [Concomitant]
  5. METFORMIN HCL [Concomitant]
  6. AV-951 TIVOZANIB [Suspect]
     Indication: COLORECTAL CANCER
     Dosage: 1.0 MG PO QD
     Route: 048
     Dates: start: 20110309, end: 20110515
  7. METOPROLOL TARTRATE [Concomitant]
  8. PRAVASTAN [Concomitant]
  9. AMLODIPINE [Concomitant]
  10. NOVOLOG [Concomitant]
  11. ASPIRIN [Concomitant]
  12. LANTUS [Concomitant]
  13. PERCOSET [Concomitant]

REACTIONS (1)
  - DEHYDRATION [None]
